FAERS Safety Report 9503115 (Version 3)
Quarter: 2013Q3

REPORT INFORMATION
  Report Type: Report from Study
  Country: FR (occurrence: FR)
  Receive Date: 20130906
  Receipt Date: 20130920
  Transmission Date: 20140515
  Serious: Yes (Death, Other)
  Sender: FDA-Public Use
  Company Number: FR-PFIZER INC-2013254224

PATIENT
  Age: 49 Year
  Sex: Male
  Weight: 71 kg

DRUGS (1)
  1. CRIZOTINIB [Suspect]
     Dosage: UNK
     Dates: start: 20121001, end: 20121107

REACTIONS (2)
  - Haemoptysis [Fatal]
  - Renal failure [Unknown]
